FAERS Safety Report 14689800 (Version 1)
Quarter: 2018Q1

REPORT INFORMATION
  Report Type: Spontaneous
  Country: FR (occurrence: FR)
  Receive Date: 20180328
  Receipt Date: 20180328
  Transmission Date: 20180509
  Serious: Yes (Hospitalization)
  Sender: FDA-Public Use
  Company Number: FR-TEVA-2018-FR-871617

PATIENT
  Age: 42 Year
  Sex: Male
  Weight: 83 kg

DRUGS (2)
  1. DIAZEPAM. [Suspect]
     Active Substance: DIAZEPAM
     Indication: ALCOHOL DETOXIFICATION
     Route: 048
  2. BACLOFENE [Suspect]
     Active Substance: BACLOFEN
     Indication: ALCOHOL DETOXIFICATION
     Route: 048

REACTIONS (2)
  - Coma [Recovered/Resolved]
  - Acute kidney injury [Recovered/Resolved]
